FAERS Safety Report 26194894 (Version 1)
Quarter: 2025Q4

REPORT INFORMATION
  Report Type: Spontaneous
  Country: JP (occurrence: JP)
  Receive Date: 20251224
  Receipt Date: 20251224
  Transmission Date: 20260118
  Serious: Yes (Hospitalization, Other)
  Sender: CHEPLAPHARM
  Company Number: JP-CP_KK-2025JP005620

PATIENT
  Age: 6 Decade
  Sex: Female

DRUGS (7)
  1. OLANZAPINE [Suspect]
     Active Substance: OLANZAPINE
     Indication: Schizophrenia
     Dosage: DAILY DOSE: 10 MILLIGRAM
  2. ESTAZOLAM [Suspect]
     Active Substance: ESTAZOLAM
     Indication: Schizophrenia
     Dosage: DAILY DOSE: 2 MILLIGRAM
  3. RISPERIDONE [Suspect]
     Active Substance: RISPERIDONE
     Indication: Schizophrenia
     Dosage: DAILY DOSE: 9 MILLIGRAM
  4. HALOPERIDOL [Suspect]
     Active Substance: HALOPERIDOL
     Indication: Schizophrenia
     Dosage: DAILY DOSE: 3 MILLIGRAM
  5. LORAZEPAM [Suspect]
     Active Substance: LORAZEPAM
     Indication: Schizophrenia
     Dosage: DAILY DOSE: 3 MILLIGRAM
  6. BROTIZOLAM [Suspect]
     Active Substance: BROTIZOLAM
     Indication: Schizophrenia
     Dosage: DAILY DOSE: 0.25 MILLIGRAM
  7. BROTIZOLAM [Suspect]
     Active Substance: BROTIZOLAM
     Indication: Schizophrenia
     Dosage: DAILY DOSE: 60 MILLIGRAM

REACTIONS (3)
  - Hypoxia [Unknown]
  - Pyrexia [Unknown]
  - Dysphagia [Recovering/Resolving]
